FAERS Safety Report 6755769-8 (Version None)
Quarter: 2010Q2

REPORT INFORMATION
  Report Type: 
  Country: None (occurrence: None)
  Receive Date: 20100524
  Receipt Date: 20100302
  Transmission Date: 20101027
  Serious: No
  Sender: FDA-Public Use
  Company Number: 008132

PATIENT
  Sex: Female
  Weight: 76.4 kg

DRUGS (6)
  1. CIMZIA [Suspect]
     Indication: RHEUMATOID ARTHRITIS
     Dosage: (400 MG SUBCUTANEOUS)
     Route: 058
     Dates: start: 20100214
  2. IMURAN [Concomitant]
  3. NAPROXEN [Concomitant]
  4. FOLIC ACID [Concomitant]
  5. PREDNISONE [Concomitant]
  6. VITAMIN B-12 [Concomitant]

REACTIONS (2)
  - INJECTION SITE DISCOLOURATION [None]
  - INJECTION SITE PAIN [None]
